FAERS Safety Report 18505610 (Version 1)
Quarter: 2020Q4

REPORT INFORMATION
  Report Type: Spontaneous
  Country: AU (occurrence: AU)
  Receive Date: 20201116
  Receipt Date: 20201116
  Transmission Date: 20210114
  Serious: Yes (Other)
  Sender: FDA-Public Use
  Company Number: NVSC2020AU302879

PATIENT
  Sex: Female

DRUGS (3)
  1. APIXABAN [Suspect]
     Active Substance: APIXABAN
     Indication: LAMIN A/C GENE MUTATION
     Dosage: 5 MG, BID (5MG BD)
     Route: 065
  2. VALSARTAN. [Suspect]
     Active Substance: VALSARTAN
     Indication: LAMIN A/C GENE MUTATION
     Dosage: 20 MG, QD
     Route: 065
  3. SOTALOL. [Suspect]
     Active Substance: SOTALOL
     Indication: LAMIN A/C GENE MUTATION
     Dosage: 80 MG, BID (80MG BD)
     Route: 065

REACTIONS (2)
  - Ejection fraction decreased [Unknown]
  - Product use in unapproved indication [Unknown]
